FAERS Safety Report 8879854 (Version 1)
Quarter: 2012Q4

REPORT INFORMATION
  Report Type: 
  Country: AR (occurrence: AR)
  Receive Date: 20121101
  Receipt Date: 20121101
  Transmission Date: 20130627
  Serious: Yes (Other)
  Sender: FDA-Public Use
  Company Number: AR-BAYER-2012-110162

PATIENT
  Age: 55 Year
  Sex: Male

DRUGS (1)
  1. ASPIRINETAS [Suspect]
     Indication: CARDIOVASCULAR EVENT PROPHYLAXIS
     Dosage: UNK
     Route: 048
     Dates: start: 2005

REACTIONS (2)
  - Cough [Recovered/Resolved]
  - Syncope [Recovered/Resolved]
